FAERS Safety Report 10264762 (Version 1)
Quarter: 2014Q2

REPORT INFORMATION
  Report Type: Spontaneous
  Country: NL (occurrence: None)
  Receive Date: 20140624
  Receipt Date: 20140624
  Transmission Date: 20141212
  Serious: Yes (Hospitalization)
  Sender: FDA-Public Use
  Company Number: DEP_02155_2014

PATIENT
  Age: 61 Year
  Sex: Female

DRUGS (1)
  1. DICLOFENAC [Suspect]
     Indication: RENAL COLIC
     Dosage: DF

REACTIONS (5)
  - Skin lesion [None]
  - Pyrexia [None]
  - Blood culture positive [None]
  - Culture urine positive [None]
  - Escherichia test positive [None]
